FAERS Safety Report 15516004 (Version 7)
Quarter: 2019Q1

REPORT INFORMATION
  Report Type: Spontaneous
  Country: US (occurrence: US)
  Receive Date: 20181017
  Receipt Date: 20190312
  Transmission Date: 20190417
  Serious: No
  Sender: FDA-Public Use
  Company Number: US-PFIZER INC-2018416978

PATIENT
  Age: 78 Year
  Sex: Female
  Weight: 77.11 kg

DRUGS (21)
  1. LAMICTAL [Concomitant]
     Active Substance: LAMOTRIGINE
     Indication: BIPOLAR DISORDER
     Dosage: 100 MG, 1X/DAY [ONCE IN THE MORNING]
     Route: 048
  2. VITAMIN E [Concomitant]
     Active Substance: .ALPHA.-TOCOPHEROL
     Indication: ROUTINE HEALTH MAINTENANCE
     Dosage: 400 IU, DAILY [TAKE 1 DAILY BY MOUTH]
     Route: 048
  3. VITAMIN D3 [Concomitant]
     Active Substance: CHOLECALCIFEROL
     Indication: BONE DISORDER
     Dosage: 1000 IU, DAILY [TAKES 1 TABLET A DAY BY MOUTH]
     Route: 048
  4. VITAMIN D3 [Concomitant]
     Active Substance: CHOLECALCIFEROL
     Indication: IMMUNE SYSTEM DISORDER
  5. VITAMIN B12 [Concomitant]
     Active Substance: CYANOCOBALAMIN
     Indication: HYPERVITAMINOSIS D
     Dosage: 2500 UG, DAILY [TAKES 1 PER DAY BY MOUTH]
     Route: 048
  6. BIOTIN [Concomitant]
     Active Substance: BIOTIN
     Indication: SKIN DISORDER
     Dosage: 2 DF, 2X/DAY [TABLET, TAKE ONE IN THE MORNING AND ONE AT NIGHT BY MOUTH]
     Route: 048
  7. VITAMIN E [Concomitant]
     Active Substance: .ALPHA.-TOCOPHEROL
     Indication: CARDIAC DISORDER
  8. OMEGA 3 FISH OIL [FISH OIL] [Concomitant]
     Indication: CARDIAC DISORDER
  9. LYRICA [Suspect]
     Active Substance: PREGABALIN
     Dosage: 50 MG, 1X/DAY [ONE AT BEDTIME]
     Route: 048
     Dates: start: 20180927
  10. RESTORIL [TEMAZEPAM] [Concomitant]
     Indication: BIPOLAR DISORDER
     Dosage: 15 MG, 1X/DAY [ONCE A DAY AT BEDTIME]
     Route: 048
  11. WELLBUTRIN [Concomitant]
     Active Substance: BUPROPION HYDROCHLORIDE
     Indication: BIPOLAR DISORDER
     Dosage: 150 MG, 1X/DAY [ONCE IN THE MORNING]
     Route: 048
  12. LYRICA [Suspect]
     Active Substance: PREGABALIN
     Indication: NEUROPATHY PERIPHERAL
     Dosage: 50 MG, 1X/DAY [TOOK IT IN THE MORNING]
  13. BIOTIN [Concomitant]
     Active Substance: BIOTIN
     Indication: SKIN DISORDER
  14. BIOTIN [Concomitant]
     Active Substance: BIOTIN
     Indication: NAIL DISORDER
  15. LYRICA [Suspect]
     Active Substance: PREGABALIN
     Dosage: 50 MG, 1X/DAY (IN THE EVENING)
     Route: 048
  16. MAGNESIUM [Concomitant]
     Active Substance: MAGNESIUM
     Indication: BONE DISORDER
     Dosage: 200 MG, DAILY [TAKES 1 A DAY BY MOUTH]
     Route: 048
  17. MAGNESIUM [Concomitant]
     Active Substance: MAGNESIUM
     Indication: MUSCLE DISORDER
  18. OMEGA 3 FISH OIL [FISH OIL] [Concomitant]
     Indication: ROUTINE HEALTH MAINTENANCE
     Dosage: 1200 MG, DAILY [ONE CAPSULE DAILY BY MOUTH]
     Route: 048
  19. OCUVITE [ASCORBIC ACID;RETINOL;TOCOPHEROL] [Concomitant]
     Indication: GLAUCOMA
     Dosage: 1 DF, DAILY [CAPSULE A DAY BY MOUTH]
     Route: 048
  20. BIOTIN [Concomitant]
     Active Substance: BIOTIN
     Indication: HAIR DISORDER
  21. STOOL SOFTENER (DOCUSATE) [Concomitant]
     Active Substance: DOCUSATE
     Indication: ABNORMAL FAECES
     Dosage: 200 MG, DAILY [TAKE 2 A DAY]
     Route: 048

REACTIONS (4)
  - Headache [Recovered/Resolved]
  - Peripheral swelling [Unknown]
  - Drug effect incomplete [Unknown]
  - Dizziness [Recovered/Resolved]

NARRATIVE: CASE EVENT DATE: 20180928
